FAERS Safety Report 5387241-4 (Version None)
Quarter: 2007Q3

REPORT INFORMATION
  Report Type: 
  Country: None (occurrence: None)
  Receive Date: 20070716
  Receipt Date: 20070706
  Transmission Date: 20080115
  Serious: Yes (Other)
  Sender: FDA-Public Use
  Company Number: HQWYE929109JUL07

PATIENT
  Sex: Female
  Weight: 24.06 kg

DRUGS (2)
  1. PREMARIN [Suspect]
     Indication: GENITAL LABIAL ADHESIONS
     Dosage: UNKNOWN DOSAGE TWICE DAILY
     Route: 067
     Dates: start: 20060701
  2. PREMARIN [Suspect]
     Dosage: UNKNOWN DOSAGE TWICE DAILY
     Route: 067
     Dates: start: 20070101

REACTIONS (3)
  - DRUG INEFFECTIVE [None]
  - HEPATITIS [None]
  - SKIN DISCOLOURATION [None]
